FAERS Safety Report 6388011-0 (Version None)
Quarter: 2009Q4

REPORT INFORMATION
  Report Type: 
  Country: None (occurrence: None)
  Receive Date: 20091001
  Receipt Date: 20091001
  Transmission Date: 20100525
  Serious: Yes (Other)
  Sender: FDA-Public Use
  Company Number: None

PATIENT
  Sex: Female
  Weight: 102.0593 kg

DRUGS (3)
  1. PAXIL [Suspect]
     Indication: ANXIETY
     Dosage: 60 MG DOWN TO 10MG EA DAY
     Dates: start: 20090101
  2. PAXIL [Suspect]
     Indication: DEPRESSION
     Dosage: 60 MG DOWN TO 10MG EA DAY
     Dates: start: 20090101
  3. PAXIL [Suspect]
     Indication: POST-TRAUMATIC STRESS DISORDER
     Dosage: 60 MG DOWN TO 10MG EA DAY
     Dates: start: 20090101

REACTIONS (4)
  - DIZZINESS [None]
  - DRUG WITHDRAWAL SYNDROME [None]
  - SENSORY DISTURBANCE [None]
  - WEIGHT INCREASED [None]
